FAERS Safety Report 21526730 (Version 1)
Quarter: 2022Q4

REPORT INFORMATION
  Report Type: Spontaneous
  Country: US (occurrence: US)
  Receive Date: 20221031
  Receipt Date: 20221031
  Transmission Date: 20230113
  Serious: Yes (Other)
  Sender: FDA-Public Use
  Company Number: US-drreddys-LIT/USA/22/0156499

PATIENT
  Age: 52 Year
  Sex: Male

DRUGS (4)
  1. MINOCYCLINE HYDROCHLORIDE [Suspect]
     Active Substance: MINOCYCLINE HYDROCHLORIDE
     Indication: Lyme disease
     Dates: start: 201601
  2. DAPSONE [Suspect]
     Active Substance: DAPSONE
     Indication: Lyme disease
     Dates: start: 201601
  3. DAPSONE [Suspect]
     Active Substance: DAPSONE
     Dates: start: 201603
  4. RIFAMPIN [Suspect]
     Active Substance: RIFAMPIN
     Indication: Lyme disease

REACTIONS (1)
  - Jarisch-Herxheimer reaction [Recovered/Resolved]
